FAERS Safety Report 4494246-4 (Version None)
Quarter: 2004Q4

REPORT INFORMATION
  Report Type: 
  Country: None (occurrence: None)
  Receive Date: 20041105
  Receipt Date: 20041101
  Transmission Date: 20050328
  Serious: Yes (Life-Threatening)
  Sender: FDA-Public Use
  Company Number: PHBS2004NL14709

PATIENT
  Age: 60 Year
  Sex: Male

DRUGS (3)
  1. LEPONEX [Suspect]
     Indication: SCHIZOPHRENIA
     Dosage: 425 MG/D
     Route: 048
     Dates: end: 20041030
  2. OXAZEPAM [Interacting]
     Dosage: 25 MG, BID
     Route: 065
  3. PAROXETINE [Interacting]
     Dosage: 60 MG/D
     Route: 048

REACTIONS (10)
  - ARRHYTHMIA [None]
  - CARDIAC FAILURE [None]
  - DISORIENTATION [None]
  - DRUG LEVEL INCREASED [None]
  - MYOCARDIAL INFARCTION [None]
  - NEPHRITIS [None]
  - PERICARDITIS [None]
  - RENAL IMPAIRMENT [None]
  - SYNCOPE [None]
  - TACHYCARDIA [None]
